FAERS Safety Report 9345991 (Version 1)
Quarter: 2013Q2

REPORT INFORMATION
  Report Type: Report from Study
  Country: NL (occurrence: NL)
  Receive Date: 20130613
  Receipt Date: 20130613
  Transmission Date: 20140414
  Serious: Yes (Other)
  Sender: FDA-Public Use
  Company Number: NL-ROCHE-1235556

PATIENT
  Age: 32 Year
  Sex: Male

DRUGS (2)
  1. PEG-INTERFERON ALFA 2A [Suspect]
     Indication: CHRONIC HEPATITIS B
     Dosage: LAST DOSE PRIOR TO SAE : 16/JAN/2007
     Route: 058
     Dates: start: 20060911, end: 20070305
  2. ADEFOVIR [Suspect]
     Indication: CHRONIC HEPATITIS B
     Route: 065

REACTIONS (1)
  - Autoimmune hepatitis [Recovered/Resolved]
